FAERS Safety Report 18227656 (Version 1)
Quarter: 2020Q3

REPORT INFORMATION
  Report Type: Spontaneous
  Country: US (occurrence: US)
  Receive Date: 20200903
  Receipt Date: 20200903
  Transmission Date: 20201103
  Serious: Yes (Hospitalization)
  Sender: FDA-Public Use
  Company Number: NVSC2020US234436

PATIENT
  Sex: Female

DRUGS (1)
  1. RECLAST [Suspect]
     Active Substance: ZOLEDRONIC ACID
     Indication: PRODUCT USED FOR UNKNOWN INDICATION
     Dosage: UNK
     Route: 065

REACTIONS (7)
  - Migraine [Unknown]
  - Abdominal distension [Unknown]
  - Pyrexia [Unknown]
  - Back pain [Unknown]
  - Burning sensation [Unknown]
  - Weight increased [Not Recovered/Not Resolved]
  - Micturition frequency decreased [Unknown]
